FAERS Safety Report 7581937-1 (Version None)
Quarter: 2011Q2

REPORT INFORMATION
  Report Type: 
  Country: None (occurrence: None)
  Receive Date: 20110629
  Receipt Date: 20110627
  Transmission Date: 20111010
  Serious: Yes (Death, Other)
  Sender: FDA-Public Use
  Company Number: US-CELGENEUS-163-21880-11063531

PATIENT
  Sex: Male
  Weight: 66.4 kg

DRUGS (8)
  1. LEVOTHYROXINE SODIUM [Concomitant]
     Route: 065
  2. CYANOCOBALAMIN [Concomitant]
     Route: 065
  3. FLUTICASONE NASAL SPRAY [Concomitant]
     Route: 065
  4. REVLIMID [Suspect]
     Indication: MULTIPLE MYELOMA
     Dosage: 25 MILLIGRAM
     Route: 048
     Dates: start: 20091229, end: 20110301
  5. LOVASTATIN [Concomitant]
     Route: 065
  6. OMEPRAZOLE [Concomitant]
     Route: 065
  7. DEXAMETHASONE [Concomitant]
     Route: 065
  8. SIMVASTATIN [Concomitant]
     Route: 065

REACTIONS (3)
  - HERPES ZOSTER [None]
  - DEATH [None]
  - DISEASE PROGRESSION [None]
